FAERS Safety Report 12387204 (Version 1)
Quarter: 2016Q2

REPORT INFORMATION
  Report Type: Spontaneous
  Country: US (occurrence: US)
  Receive Date: 20160519
  Receipt Date: 20160519
  Transmission Date: 20160815
  Serious: No
  Sender: FDA-Public Use
  Company Number: US-MDT-ADR-2016-00506

PATIENT
  Age: 45 Year
  Sex: Female

DRUGS (4)
  1. MORPHINE [Suspect]
     Active Substance: MORPHINE
     Route: 037
  2. OXYCODONE [Suspect]
     Active Substance: OXYCODONE
     Route: 048
  3. DILAUDID [Suspect]
     Active Substance: HYDROMORPHONE HYDROCHLORIDE
     Route: 037
  4. BACLOFEN. [Suspect]
     Active Substance: BACLOFEN
     Route: 037

REACTIONS (1)
  - Adverse drug reaction [Unknown]
